FAERS Safety Report 13737998 (Version 4)
Quarter: 2019Q3

REPORT INFORMATION
  Report Type: Spontaneous
  Country: AU (occurrence: AU)
  Receive Date: 20170710
  Receipt Date: 20190909
  Transmission Date: 20191004
  Serious: Yes (Other)
  Sender: FDA-Public Use
  Company Number: AU-SA-2017SA119215

PATIENT
  Age: 39 Year
  Sex: Female

DRUGS (2)
  1. LEMTRADA [Suspect]
     Active Substance: ALEMTUZUMAB
     Indication: MULTIPLE SCLEROSIS
     Dosage: UNK UNK,UNK
     Route: 041
     Dates: start: 201606, end: 201606
  2. LEMTRADA [Suspect]
     Active Substance: ALEMTUZUMAB
     Dosage: UNK UNK, UNK
     Route: 041
     Dates: start: 201506, end: 201506

REACTIONS (17)
  - Exophthalmos [Unknown]
  - Basedow^s disease [Unknown]
  - Rosacea [Unknown]
  - Cough [Not Recovered/Not Resolved]
  - Depression [Unknown]
  - Pregnancy [Unknown]
  - Coordination abnormal [Unknown]
  - Optic atrophy [Unknown]
  - Oedema peripheral [Not Recovered/Not Resolved]
  - Musculoskeletal stiffness [Unknown]
  - Thrombocytopenia [Recovered/Resolved]
  - Thyroid disorder [Unknown]
  - Pulmonary hypertension [Not Recovered/Not Resolved]
  - Hypertonia [Unknown]
  - Hyperthyroidism [Unknown]
  - Lymphocyte count decreased [Unknown]
  - Fatigue [Unknown]

NARRATIVE: CASE EVENT DATE: 201610
